FAERS Safety Report 10659786 (Version 1)
Quarter: 2014Q4

REPORT INFORMATION
  Report Type: Spontaneous
  Country: BR (occurrence: BR)
  Receive Date: 20141217
  Receipt Date: 20141217
  Transmission Date: 20150529
  Serious: Yes (Other)
  Sender: FDA-Public Use
  Company Number: BR-PFIZER INC-2014342865

PATIENT
  Age: 51 Year
  Sex: Male
  Weight: 67 kg

DRUGS (1)
  1. SUTENT [Suspect]
     Active Substance: SUNITINIB MALATE
     Indication: RENAL CELL CARCINOMA
     Dosage: 50 MG, CYCLIC (CYCLE 4 PER 2)
     Route: 048
     Dates: start: 201408

REACTIONS (9)
  - Myalgia [Unknown]
  - Skin toxicity [Not Recovered/Not Resolved]
  - Fatigue [Unknown]
  - Skin fissures [Unknown]
  - Dysgeusia [Unknown]
  - Saliva altered [Unknown]
  - Dysentery [Unknown]
  - Burning sensation [Unknown]
  - Oral discomfort [Unknown]

NARRATIVE: CASE EVENT DATE: 2014
